FAERS Safety Report 5683038-6 (Version None)
Quarter: 2008Q1

REPORT INFORMATION
  Report Type: 
  Country: None (occurrence: None)
  Receive Date: 20080327
  Receipt Date: 20080319
  Transmission Date: 20080703
  Serious: Yes (Other)
  Sender: FDA-Public Use
  Company Number: PHBS2007PT14704

PATIENT
  Age: 40 Year
  Sex: Female

DRUGS (4)
  1. ZOLEDRONIC ACID [Suspect]
     Indication: MULTIPLE MYELOMA
     Dosage: 4 MG, QMO
     Route: 042
  2. CYCLOPHOSPHAMIDE [Concomitant]
     Indication: MULTIPLE MYELOMA
     Dosage: 1 MG, D
     Route: 042
  3. CYCLOPHOSPHAMIDE [Concomitant]
     Dosage: UNK, QMO
     Route: 042
  4. DEXAMETHASONE [Concomitant]
     Indication: MULTIPLE MYELOMA
     Dosage: 40 MG/FOR 4 DAYS/EVERY MONTH
     Route: 048

REACTIONS (10)
  - BACTERIAL INFECTION [None]
  - BIOPSY BONE ABNORMAL [None]
  - BONE DEBRIDEMENT [None]
  - BONE DISORDER [None]
  - BONE OPERATION [None]
  - EXCESSIVE GRANULATION TISSUE [None]
  - FACE AND MOUTH X-RAY ABNORMAL [None]
  - OSTEONECROSIS [None]
  - OSTEOSCLEROSIS [None]
  - TOOTH EXTRACTION [None]
